FAERS Safety Report 15037930 (Version 3)
Quarter: 2018Q4

REPORT INFORMATION
  Report Type: Report from Study
  Country: DE (occurrence: DE)
  Receive Date: 20180620
  Receipt Date: 20181217
  Transmission Date: 20190204
  Serious: Yes (Other)
  Sender: FDA-Public Use
  Company Number: PHHY2018DE024177

PATIENT

DRUGS (1)
  1. ENTRESTO [Suspect]
     Active Substance: SACUBITRIL\VALSARTAN
     Indication: CARDIAC FAILURE
     Dosage: 1 DF (24MG SACUBITRIL/26MG VALSARTAN), BID
     Route: 065
     Dates: start: 20171211

REACTIONS (2)
  - Bradycardia [Recovered/Resolved]
  - Prostate cancer [Recovering/Resolving]

NARRATIVE: CASE EVENT DATE: 20180418
